FAERS Safety Report 11443781 (Version 1)
Quarter: 2015Q3

REPORT INFORMATION
  Report Type: Spontaneous
  Country: PL (occurrence: PL)
  Receive Date: 20150901
  Receipt Date: 20150901
  Transmission Date: 20151125
  Serious: Yes (Other)
  Sender: FDA-Public Use
  Company Number: PL-AMGEN-POLSP2015088911

PATIENT
  Age: 33 Year
  Sex: Male
  Weight: 92 kg

DRUGS (4)
  1. IPP                                /00661201/ [Concomitant]
     Indication: ANKYLOSING SPONDYLITIS
     Dosage: 20 MG, DAILY
     Route: 048
     Dates: start: 201401
  2. ENBREL [Suspect]
     Active Substance: ETANERCEPT
     Indication: ANKYLOSING SPONDYLITIS
     Dosage: 50 MG, WEEKLY
     Route: 058
     Dates: start: 20141211, end: 20150129
  3. IPP                                /00661201/ [Concomitant]
     Indication: PROPHYLAXIS
  4. MOVALIS [Suspect]
     Active Substance: MELOXICAM
     Indication: ANKYLOSING SPONDYLITIS
     Dosage: 15 MG, DAILY
     Route: 048
     Dates: start: 201401

REACTIONS (2)
  - Disturbance in attention [Recovering/Resolving]
  - Syncope [Recovered/Resolved]

NARRATIVE: CASE EVENT DATE: 201412
